FAERS Safety Report 6495997-2 (Version None)
Quarter: 2009Q4

REPORT INFORMATION
  Report Type: 
  Country: None (occurrence: None)
  Receive Date: 20091214
  Receipt Date: 20090914
  Transmission Date: 20100525
  Serious: No
  Sender: FDA-Public Use
  Company Number: US-BRISTOL-MYERS SQUIBB COMPANY-14778286

PATIENT
  Age: 13 Year
  Sex: Male

DRUGS (3)
  1. ABILIFY [Suspect]
     Indication: CONDUCT DISORDER
     Dosage: STARTED WITH 2MG , WITH DOSAGE INCREASES UPTO 15MG
  2. CLONIDINE [Concomitant]
  3. MIRALAX [Concomitant]
     Dosage: MIRALAX RH

REACTIONS (1)
  - NYSTAGMUS [None]
